FAERS Safety Report 5648692-3 (Version None)
Quarter: 2008Q1

REPORT INFORMATION
  Report Type: 
  Country: None (occurrence: None)
  Receive Date: 20080304
  Receipt Date: 20080225
  Transmission Date: 20080703
  Serious: Yes (Other)
  Sender: FDA-Public Use
  Company Number: B0510429A

PATIENT
  Age: 60 Year
  Sex: Male

DRUGS (5)
  1. SERETIDE [Suspect]
     Indication: ASTHMA
     Route: 055
     Dates: start: 20080208
  2. SEREVENT [Concomitant]
     Route: 065
  3. BRICANYL [Concomitant]
     Route: 065
  4. PULMICORT [Concomitant]
     Route: 065
  5. THEO-DUR [Concomitant]
     Route: 065

REACTIONS (3)
  - ASTHENIA [None]
  - ASTHMA [None]
  - HEADACHE [None]
